FAERS Safety Report 14220420 (Version 1)
Quarter: 2017Q4

REPORT INFORMATION
  Report Type: Report from Study
  Country: TZ (occurrence: TZ)
  Receive Date: 20171124
  Receipt Date: 20171124
  Transmission Date: 20180321
  Serious: Yes (Hospitalization, Other)
  Sender: FDA-Public Use
  Company Number: TZ-VIIV HEALTHCARE LIMITED-TZ2017GSK178233

PATIENT
  Age: 34 Year
  Sex: Female
  Weight: 75.6 kg

DRUGS (4)
  1. RALTEGRAVIR. [Suspect]
     Active Substance: RALTEGRAVIR
     Indication: HIV INFECTION
     Dosage: 400 MG, BID
     Route: 048
     Dates: start: 20171005
  2. COTRIMOXAZOLE [Suspect]
     Active Substance: SULFAMETHOXAZOLE\TRIMETHOPRIM
     Indication: ANTIFUNGAL PROPHYLAXIS
     Dosage: UNK, QD
     Route: 048
     Dates: end: 20171108
  3. LAMIVUDINE AND ZIDOVUDINE [Suspect]
     Active Substance: LAMIVUDINE\ZIDOVUDINE
     Indication: HIV INFECTION
     Dosage: 450 MG, BID
     Route: 048
     Dates: start: 20171005
  4. HEMOVIT [Suspect]
     Active Substance: IRON\VITAMINS
     Indication: ANAEMIA PROPHYLAXIS
     Dosage: UNK, QD
     Route: 048
     Dates: end: 20171108

REACTIONS (1)
  - Foetal death [Not Recovered/Not Resolved]

NARRATIVE: CASE EVENT DATE: 20171108
